FAERS Safety Report 9676501 (Version 1)
Quarter: 2013Q4

REPORT INFORMATION
  Report Type: Spontaneous
  Country: GB (occurrence: GB)
  Receive Date: 20131107
  Receipt Date: 20131107
  Transmission Date: 20140711
  Serious: Yes (Other)
  Sender: FDA-Public Use
  Company Number: GB-GILEAD-2013-0086885

PATIENT
  Sex: Male

DRUGS (1)
  1. STRIBILD [Suspect]
     Indication: HIV INFECTION
     Dosage: UNK

REACTIONS (1)
  - Hallucination, auditory [Recovered/Resolved]
